FAERS Safety Report 4387848-7 (Version None)
Quarter: 2004Q2

REPORT INFORMATION
  Report Type: 
  Country: None (occurrence: None)
  Receive Date: 20040630
  Receipt Date: 20040426
  Transmission Date: 20050107
  Serious: Yes (Other)
  Sender: FDA-Public Use
  Company Number: DE-AMGEN-UK073840

PATIENT
  Sex: Female
  Weight: 79 kg

DRUGS (7)
  1. NEULASTA [Suspect]
     Indication: CHEMOTHERAPY
     Route: 058
     Dates: start: 20040206, end: 20040206
  2. FLUOROURACIL [Concomitant]
  3. EPIRUBICIN [Concomitant]
  4. CYCLOPHOSPHAMIDE [Concomitant]
  5. URBASON [Concomitant]
     Route: 048
     Dates: start: 20030201
  6. FORTECORTIN [Concomitant]
     Route: 048
     Dates: start: 20040126, end: 20040128
  7. DOLASETRON MESYLATE [Concomitant]
     Route: 048
     Dates: start: 20040126, end: 20040128

REACTIONS (3)
  - BONE PAIN [None]
  - MUSCLE CRAMP [None]
  - MYALGIA [None]
